FAERS Safety Report 23062080 (Version 2)
Quarter: 2023Q4

REPORT INFORMATION
  Report Type: Spontaneous
  Country: DZ (occurrence: DZ)
  Receive Date: 20231013
  Receipt Date: 20231030
  Transmission Date: 20240110
  Serious: Yes (Death, Life-Threatening, Hospitalization, Other)
  Sender: FDA-Public Use
  Company Number: DZ-AMGEN-DZASP2023177602

PATIENT
  Age: 40 Year
  Sex: Male

DRUGS (2)
  1. KYPROLIS [Suspect]
     Active Substance: CARFILZOMIB
     Indication: Plasma cell myeloma refractory
     Dosage: 20 MILLIGRAM/SQ. METER, QWK (60 MG)
     Route: 042
     Dates: start: 20230926
  2. DEXAMETHASONE [Suspect]
     Active Substance: DEXAMETHASONE
     Indication: Plasma cell myeloma refractory
     Dosage: 40 MILLIGRAM, QWK
     Route: 042
     Dates: start: 20230926

REACTIONS (18)
  - Death [Fatal]
  - Arrhythmia [Recovered/Resolved]
  - Syncope [Not Recovered/Not Resolved]
  - Agitation [Not Recovered/Not Resolved]
  - Asthenia [Not Recovered/Not Resolved]
  - Hypertension [Recovered/Resolved]
  - Pyrexia [Recovered/Resolved]
  - Respiratory distress [Unknown]
  - Platelet count decreased [Unknown]
  - Haemoglobin decreased [Unknown]
  - Troponin increased [Unknown]
  - Sinus tachycardia [Unknown]
  - Confusional state [Not Recovered/Not Resolved]
  - Fatigue [Not Recovered/Not Resolved]
  - Behaviour disorder [Unknown]
  - Red blood cell count increased [Unknown]
  - General physical health deterioration [Recovering/Resolving]
  - Sinoatrial block [Unknown]

NARRATIVE: CASE EVENT DATE: 20231001
